FAERS Safety Report 16895547 (Version 1)
Quarter: 2019Q4

REPORT INFORMATION
  Report Type: Report from Study
  Country: US (occurrence: US)
  Receive Date: 20191008
  Receipt Date: 20191008
  Transmission Date: 20200122
  Serious: No
  Sender: FDA-Public Use
  Company Number: US-ALNYLAM PHARMACEUTICALS, INC.-ALN-2019-000695

PATIENT
  Age: 82 Year
  Sex: Male

DRUGS (1)
  1. ONPATTRO [Suspect]
     Active Substance: PATISIRAN SODIUM
     Indication: HEREDITARY NEUROPATHIC AMYLOIDOSIS
     Dosage: UNK, Q3W
     Route: 042
     Dates: start: 20190906

REACTIONS (5)
  - Feeling hot [Unknown]
  - Infusion related reaction [Unknown]
  - Fall [Unknown]
  - Therapy non-responder [Unknown]
  - Asthenia [Unknown]

NARRATIVE: CASE EVENT DATE: 20190906
